FAERS Safety Report 16584839 (Version 3)
Quarter: 2020Q2

REPORT INFORMATION
  Report Type: Report from Study
  Country: AU (occurrence: AU)
  Receive Date: 20190717
  Receipt Date: 20200519
  Transmission Date: 20200713
  Serious: Yes (Hospitalization)
  Sender: FDA-Public Use
  Company Number: AU-BIOGEN-2019BI00727706

PATIENT
  Age: 54 Year
  Sex: Female

DRUGS (8)
  1. TECFIDERA [Suspect]
     Active Substance: DIMETHYL FUMARATE
     Indication: MULTIPLE SCLEROSIS
     Route: 048
     Dates: start: 20190412
  2. TECFIDERA [Suspect]
     Active Substance: DIMETHYL FUMARATE
     Dosage: MAINTENANCE DOSE
     Route: 048
     Dates: start: 20190412
  3. TECFIDERA [Suspect]
     Active Substance: DIMETHYL FUMARATE
     Route: 048
  4. CRANBERRY. [Concomitant]
     Active Substance: CRANBERRY
     Indication: ESCHERICHIA URINARY TRACT INFECTION
     Route: 065
  5. PROBIOTICS [Concomitant]
     Active Substance: PROBIOTICS NOS
     Indication: ESCHERICHIA URINARY TRACT INFECTION
     Route: 065
  6. TECFIDERA [Suspect]
     Active Substance: DIMETHYL FUMARATE
     Dosage: MAINTENANCE DOSE
     Route: 048
  7. HIPREX [Concomitant]
     Active Substance: METHENAMINE HIPPURATE
     Indication: ESCHERICHIA URINARY TRACT INFECTION
     Route: 065
  8. ENDEP [Suspect]
     Active Substance: AMITRIPTYLINE HYDROCHLORIDE
     Indication: THINKING ABNORMAL
     Dosage: AT NIGHT
     Route: 065

REACTIONS (10)
  - Malaise [Not Recovered/Not Resolved]
  - Underdose [Recovered/Resolved]
  - Nasopharyngitis [Not Recovered/Not Resolved]
  - Off label use [Unknown]
  - Infection [Not Recovered/Not Resolved]
  - Thinking abnormal [Not Recovered/Not Resolved]
  - Burning sensation [Unknown]
  - Urinary tract infection [Recovered/Resolved]
  - Multiple sclerosis [Unknown]
  - Somnolence [Unknown]

NARRATIVE: CASE EVENT DATE: 20190412
